FAERS Safety Report 5720698-5 (Version None)
Quarter: 2008Q2

REPORT INFORMATION
  Report Type: 
  Country: None (occurrence: None)
  Receive Date: 20080429
  Receipt Date: 20080417
  Transmission Date: 20081010
  Serious: Yes (Other)
  Sender: FDA-Public Use
  Company Number: GB-WYE-G01378708

PATIENT
  Sex: Male

DRUGS (5)
  1. EFFEXOR XR [Suspect]
     Route: 048
     Dates: start: 20080314
  2. LOSARTAN POTASSIUM [Concomitant]
     Dosage: 100 MG FREQUENCY UNKNOWN
  3. NEBILET [Concomitant]
     Dosage: 5 MG FREQUENCY UNKNOWN
  4. DIAZEPAM [Concomitant]
  5. DOXAZOSIN MESYLATE [Concomitant]
     Dosage: 2 MG, FREQUENCY UNKNOWN

REACTIONS (3)
  - ANXIETY [None]
  - CONDITION AGGRAVATED [None]
  - PANIC ATTACK [None]
